FAERS Safety Report 17421098 (Version 5)
Quarter: 2020Q2

REPORT INFORMATION
  Report Type: Spontaneous
  Country: BR (occurrence: BR)
  Receive Date: 20200214
  Receipt Date: 20200616
  Transmission Date: 20200713
  Serious: Yes (Other)
  Sender: FDA-Public Use
  Company Number: BR-NAPPMUNDI-GBR-2019-0073634

PATIENT
  Age: 34 Year
  Sex: Female

DRUGS (8)
  1. OMEPRAZOL                          /00661201/ [Concomitant]
     Active Substance: OMEPRAZOLE
     Dosage: 20 MG, DAILY
     Route: 065
  2. TRAZODONE HYDROCHLORIDE. [Concomitant]
     Active Substance: TRAZODONE HYDROCHLORIDE
     Indication: PAIN
     Dosage: 50 MG, DAILY
     Route: 065
  3. PREGABALIN. [Concomitant]
     Active Substance: PREGABALIN
     Indication: PAIN
     Dosage: 150 MG, DAILY
     Route: 065
  4. DULOXETINE. [Concomitant]
     Active Substance: DULOXETINE
     Indication: PAIN
  5. RESTIVA [Suspect]
     Active Substance: BUPRENORPHINE
     Indication: FIBROMYALGIA
     Dosage: UNK
     Route: 062
  6. RESTIVA [Suspect]
     Active Substance: BUPRENORPHINE
     Dosage: 10 MCG, Q1H [STRENGTH 10MG]
     Route: 062
     Dates: start: 201910
  7. RESTIVA [Suspect]
     Active Substance: BUPRENORPHINE
     Dosage: 5 MCG, Q1H [STRENGTH 5MG]
     Route: 062
     Dates: start: 201902
  8. DULOXETINE. [Concomitant]
     Active Substance: DULOXETINE
     Indication: DEPRESSION
     Dosage: 60 MG, DAILY
     Route: 065

REACTIONS (5)
  - Product dose omission [Unknown]
  - Systemic lupus erythematosus [Unknown]
  - Product prescribing error [Unknown]
  - Drug withdrawal syndrome [Recovered/Resolved]
  - Drug withdrawal syndrome [Recovered/Resolved]

NARRATIVE: CASE EVENT DATE: 201910
